FAERS Safety Report 13626315 (Version 1)
Quarter: 2017Q2

REPORT INFORMATION
  Report Type: Spontaneous
  Country: US (occurrence: US)
  Receive Date: 20170531
  Receipt Date: 20170531
  Transmission Date: 20170830
  Serious: Yes (Hospitalization)
  Sender: FDA-Public Use
  Company Number: US-ASTELLAS-1343812

PATIENT
  Sex: Male

DRUGS (10)
  1. TARCEVA [Suspect]
     Active Substance: ERLOTINIB HYDROCHLORIDE
     Route: 048
     Dates: start: 20140212
  2. ZOCOR [Concomitant]
     Active Substance: SIMVASTATIN
     Route: 048
  3. FINASTERIDE. [Concomitant]
     Active Substance: FINASTERIDE
     Route: 048
  4. TARCEVA [Suspect]
     Active Substance: ERLOTINIB HYDROCHLORIDE
     Route: 048
     Dates: start: 20141220
  5. MINOCIN [Concomitant]
     Active Substance: MINOCYCLINE HYDROCHLORIDE
     Route: 048
  6. MARINOL [Concomitant]
     Active Substance: DRONABINOL
     Route: 065
  7. AVODART [Concomitant]
     Active Substance: DUTASTERIDE
  8. TARCEVA [Suspect]
     Active Substance: ERLOTINIB HYDROCHLORIDE
     Indication: LUNG NEOPLASM MALIGNANT
     Route: 048
  9. REMERON [Concomitant]
     Active Substance: MIRTAZAPINE
  10. TARCEVA [Suspect]
     Active Substance: ERLOTINIB HYDROCHLORIDE
     Route: 048
     Dates: start: 20140211

REACTIONS (14)
  - Dry skin [Unknown]
  - Lacrimation increased [Not Recovered/Not Resolved]
  - Diverticulitis [Unknown]
  - Ageusia [Unknown]
  - Rash [Unknown]
  - Rash generalised [Not Recovered/Not Resolved]
  - Decreased appetite [Unknown]
  - Onychomalacia [Unknown]
  - Onychoclasis [Unknown]
  - Rash [Not Recovered/Not Resolved]
  - Diarrhoea [Not Recovered/Not Resolved]
  - Dysgeusia [Not Recovered/Not Resolved]
  - Eye discharge [Not Recovered/Not Resolved]
  - Photosensitivity reaction [Unknown]
